FAERS Safety Report 8306093-3 (Version None)
Quarter: 2012Q1

REPORT INFORMATION
  Report Type: 
  Country: None (occurrence: None)
  Receive Date: 20120327
  Receipt Date: 20100329
  Transmission Date: 20120608
  Serious: Yes (Other)
  Sender: FDA-Public Use
  Company Number: PHEH2009US14708

PATIENT
  Age: 79 Year
  Sex: Female

DRUGS (10)
  1. GLEEVEC [Suspect]
     Indication: CHRONIC MYELOID LEUKAEMIA
     Dosage: 400 MG, QD, ORAL 200 MG, QD, ORAL
     Route: 048
     Dates: start: 20090126
  2. GLEEVEC [Suspect]
     Indication: CHRONIC MYELOID LEUKAEMIA
     Dosage: 400 MG, QD, ORAL 200 MG, QD, ORAL
     Route: 048
     Dates: start: 20080922
  3. GLEEVEC [Suspect]
     Indication: CHRONIC MYELOID LEUKAEMIA
     Dosage: 400 MG, QD, ORAL 200 MG, QD, ORAL
     Route: 048
     Dates: start: 20090413
  4. GLEEVEC [Suspect]
     Indication: CHRONIC MYELOID LEUKAEMIA
     Dosage: 400 MG, QD, ORAL 200 MG, QD, ORAL
     Route: 048
     Dates: start: 20080811
  5. REQUIP [Concomitant]
  6. FLEXERIL [Concomitant]
  7. DIGOXIN [Concomitant]
  8. SYNTHROID [Concomitant]
  9. PLAVIX [Concomitant]
  10. PENTAGASTRIN (PENTAGASTRIN) [Concomitant]

REACTIONS (12)
  - PERIORBITAL OEDEMA [None]
  - PAIN [None]
  - VOMITING [None]
  - WEIGHT DECREASED [None]
  - CHRONIC MYELOID LEUKAEMIA [None]
  - ANAEMIA [None]
  - NAUSEA [None]
  - LEUKOPENIA [None]
  - FATIGUE [None]
  - MUSCLE SPASMS [None]
  - THROMBOCYTOSIS [None]
  - ASTHENIA [None]
